FAERS Safety Report 22537894 (Version 1)
Quarter: 2023Q2

REPORT INFORMATION
  Report Type: Spontaneous
  Country: JP (occurrence: JP)
  Receive Date: 20230608
  Receipt Date: 20230608
  Transmission Date: 20230721
  Serious: Yes (Hospitalization)
  Sender: FDA-Public Use
  Company Number: JP-Eisai-202302378_FYC_P_1

PATIENT
  Age: 15 Year
  Sex: Male
  Weight: 36 kg

DRUGS (3)
  1. PERAMPANEL [Suspect]
     Active Substance: PERAMPANEL
     Indication: MELAS syndrome
     Dosage: DOSE AND FREQUENCY UNKNOWN
     Route: 048
  2. UBIDECARENONE [Concomitant]
     Active Substance: UBIDECARENONE
     Indication: MELAS syndrome
     Dosage: DOSE AND FREQUENCY UNKNOWN
     Route: 065
  3. LACOSAMIDE [Concomitant]
     Active Substance: LACOSAMIDE
     Indication: MELAS syndrome
     Dosage: DOSE AND FREQUENCY UNKNOWN
     Route: 065

REACTIONS (3)
  - Dental caries [Recovered/Resolved]
  - Irritability [Unknown]
  - Off label use [Recovered/Resolved]
